FAERS Safety Report 19228645 (Version 2)
Quarter: 2022Q2

REPORT INFORMATION
  Report Type: Spontaneous
  Country: US (occurrence: None)
  Receive Date: 20210506
  Receipt Date: 20220426
  Transmission Date: 20220720
  Serious: No
  Sender: FDA-Public Use
  Company Number: US-ROCHE-2750458

PATIENT
  Sex: Male

DRUGS (1)
  1. ESBRIET [Suspect]
     Active Substance: PIRFENIDONE
     Indication: Chronic hepatitis C
     Dosage: 3 CAPSULES BY MOUTH THRICE A DAY WITH FOOD
     Route: 048
     Dates: start: 20200730

REACTIONS (4)
  - Illness [Unknown]
  - Influenza [Unknown]
  - Off label use [Unknown]
  - Product dose omission in error [Unknown]
